FAERS Safety Report 6768664-5 (Version None)
Quarter: 2010Q2

REPORT INFORMATION
  Report Type: 
  Country: None (occurrence: None)
  Receive Date: 20100614
  Receipt Date: 20100603
  Transmission Date: 20101027
  Serious: Yes (Other)
  Sender: FDA-Public Use
  Company Number: HQWYE804203FEB04

PATIENT
  Age: 16 Year
  Sex: Male

DRUGS (4)
  1. EFFEXOR [Suspect]
     Indication: SOCIAL PHOBIA
     Route: 048
  2. EFFEXOR [Suspect]
     Dosage: ^TITRATED UPT TO 300 MG DAILY OVER THE COURSE OF THREE WEEKS^
     Route: 048
  3. PAXIL [Suspect]
     Indication: SOCIAL PHOBIA
  4. PAXIL [Suspect]
     Indication: DEPRESSION
     Dates: end: 20010101

REACTIONS (9)
  - AGGRESSION [None]
  - AMNESIA [None]
  - DIZZINESS [None]
  - FEELING ABNORMAL [None]
  - HEADACHE [None]
  - HOMICIDAL IDEATION [None]
  - PARAESTHESIA [None]
  - SOMNOLENCE [None]
  - SUICIDAL IDEATION [None]
